FAERS Safety Report 4580477-1 (Version None)
Quarter: 2005Q1

REPORT INFORMATION
  Report Type: 
  Country: None (occurrence: None)
  Receive Date: 20050214
  Receipt Date: 20040204
  Transmission Date: 20050727
  Serious: No
  Sender: FDA-Public Use
  Company Number: US-GLAXOSMITHKLINE-A0496642A

PATIENT
  Age: 53 Year
  Sex: Female

DRUGS (6)
  1. LAMICTAL [Suspect]
     Indication: BIPOLAR DISORDER
     Route: 048
     Dates: start: 20031008, end: 20040204
  2. EFFEXOR [Concomitant]
  3. LEXAPRO [Concomitant]
  4. ESKALITH [Concomitant]
  5. SEROQUEL [Concomitant]
  6. PHENERGAN [Concomitant]

REACTIONS (3)
  - HOT FLUSH [None]
  - NAUSEA [None]
  - RASH [None]
